FAERS Safety Report 6129671-9 (Version None)
Quarter: 2009Q1

REPORT INFORMATION
  Report Type: 
  Country: None (occurrence: None)
  Receive Date: 20090320
  Receipt Date: 20090306
  Transmission Date: 20090719
  Serious: Yes (Life-Threatening, Hospitalization)
  Sender: FDA-Public Use
  Company Number: MPS1-1000109

PATIENT
  Age: 7 Year
  Sex: Female
  Weight: 15 kg

DRUGS (4)
  1. ALDURAZYME [Suspect]
     Indication: MUCOPOLYSACCHARIDOSIS I
     Dosage: 1700 U, QW, INTRAVENOUS ; INTRAVENOUS
     Route: 042
     Dates: start: 20040823
  2. ALDURAZYME [Suspect]
     Indication: MUCOPOLYSACCHARIDOSIS I
     Dosage: 1700 U, QW, INTRAVENOUS ; INTRAVENOUS
     Route: 042
     Dates: start: 20040901
  3. PREDNISOLONE [Concomitant]
  4. DIMENHYDRINATE [Concomitant]

REACTIONS (2)
  - ANAPHYLACTOID REACTION [None]
  - HYPERTENSION [None]
